FAERS Safety Report 11777852 (Version 1)
Quarter: 2015Q4

REPORT INFORMATION
  Report Type: Spontaneous
  Country: US (occurrence: US)
  Receive Date: 20151125
  Receipt Date: 20151125
  Transmission Date: 20160304
  Serious: No
  Sender: FDA-Public Use
  Company Number: US-THE MEDICINES COMPANY-US-MDCO-15-00378

PATIENT

DRUGS (2)
  1. ANGIOMAX [Suspect]
     Active Substance: BIVALIRUDIN
     Indication: PRODUCT USED FOR UNKNOWN INDICATION
     Dosage: NOT REPORTED
     Route: 040
     Dates: start: 20150722, end: 20150722
  2. ANGIOMAX [Suspect]
     Active Substance: BIVALIRUDIN
     Dosage: 0.25 MG/KG/HR
     Route: 041
     Dates: start: 20150722, end: 20150722

REACTIONS (1)
  - Coagulation time abnormal [Recovered/Resolved]

NARRATIVE: CASE EVENT DATE: 20150722
